FAERS Safety Report 8816640 (Version 1)
Quarter: 2012Q4

REPORT INFORMATION
  Report Type: Spontaneous
  Country: JP (occurrence: None)
  Receive Date: 20120928
  Receipt Date: 20120928
  Transmission Date: 20130627
  Serious: Yes (Other)
  Sender: FDA-Public Use
  Company Number: 2012SP002328

PATIENT
  Age: 38 Year
  Sex: Male

DRUGS (3)
  1. OXALIPLATIN (OXALIPLATIN) [Suspect]
     Indication: SMALL INTESTINE CARCINOMA
     Route: 042
  2. FLUOROURACIL (FLUOROURACIL) [Suspect]
     Indication: SMALL INTESTINE CARCINOMA
     Route: 042
  3. ISOVORIN [Suspect]
     Indication: SMALL INTESTINE CARCINOMA
     Route: 042

REACTIONS (2)
  - Bone marrow failure [None]
  - Abdominal pain [None]
